FAERS Safety Report 5010454-8 (Version None)
Quarter: 2006Q2

REPORT INFORMATION
  Report Type: 
  Country: None (occurrence: None)
  Receive Date: 20060523
  Receipt Date: 20060523
  Transmission Date: 20061013
  Serious: Yes (Hospitalization)
  Sender: FDA-Public Use
  Company Number: None

PATIENT
  Age: 49 Year
  Sex: Male
  Weight: 74.8435 kg

DRUGS (2)
  1. DILAUDID [Suspect]
     Dosage: 2 MG
     Dates: start: 20051203
  2. MORPHINE [Suspect]
     Dosage: PCA
     Dates: start: 20051203

REACTIONS (2)
  - CARDIO-RESPIRATORY ARREST [None]
  - RESPIRATORY DISORDER [None]
